FAERS Safety Report 16335698 (Version 1)
Quarter: 2019Q2

REPORT INFORMATION
  Report Type: Report from Study
  Country: NL (occurrence: NL)
  Receive Date: 20190521
  Receipt Date: 20190521
  Transmission Date: 20190711
  Serious: Yes (Hospitalization, Disabling)
  Sender: FDA-Public Use
  Company Number: NL-ROCHE-2316430

PATIENT
  Age: 39 Year
  Sex: Female

DRUGS (10)
  1. METHOTREXAAT [METHOTREXATE] [Concomitant]
     Dosage: 25MG, 1X/W
     Route: 065
     Dates: start: 20170821, end: 20190227
  2. HYDROXYCHLOROQUINE [Concomitant]
     Active Substance: HYDROXYCHLOROQUINE
     Route: 065
     Dates: start: 20091110, end: 20150202
  3. TOCILIZUMAB. [Suspect]
     Active Substance: TOCILIZUMAB
     Indication: RHEUMATOID ARTHRITIS
     Dosage: 560MG, 1X/4W
     Route: 065
     Dates: start: 20180219, end: 20181207
  4. METHOTREXAAT [METHOTREXATE] [Concomitant]
     Route: 065
     Dates: start: 20160829, end: 20170731
  5. HYDROXYCHLOROQUINE [Concomitant]
     Active Substance: HYDROXYCHLOROQUINE
     Dosage: 200MG, 1X/D
     Route: 065
     Dates: start: 20180917, end: 20190227
  6. METHOTREXAAT [METHOTREXATE] [Concomitant]
     Route: 065
     Dates: start: 20090324, end: 20150810
  7. HYDROXYCHLOROQUINE [Concomitant]
     Active Substance: HYDROXYCHLOROQUINE
     Route: 065
     Dates: start: 20150202
  8. METHOTREXAAT [METHOTREXATE] [Concomitant]
     Route: 065
     Dates: start: 20150810, end: 20160829
  9. HYDROXYCHLOROQUINE [Concomitant]
     Active Substance: HYDROXYCHLOROQUINE
     Route: 065
     Dates: start: 20171204, end: 20180917
  10. FOLIUMZUUR [Concomitant]
     Active Substance: FOLIC ACID
     Dosage: 10MG, 1X/W
     Route: 065
     Dates: start: 20170821, end: 20190227

REACTIONS (1)
  - White matter lesion [Recovering/Resolving]

NARRATIVE: CASE EVENT DATE: 20181207
